FAERS Safety Report 6716337-7 (Version None)
Quarter: 2010Q2

REPORT INFORMATION
  Report Type: 
  Country: None (occurrence: None)
  Receive Date: 20100506
  Receipt Date: 20100506
  Transmission Date: 20101027
  Serious: No
  Sender: FDA-Public Use
  Company Number: None

PATIENT
  Sex: Male
  Weight: 61 kg

DRUGS (11)
  1. PENICILLIN G [Suspect]
     Indication: NECROTISING FASCIITIS
     Dosage: PCN G 3 MILL. U Q4H IV
     Route: 042
     Dates: start: 20100120, end: 20100201
  2. VANCOMYCIN [Suspect]
     Indication: NECROTISING FASCIITIS
     Dosage: VANCOMYCIN 750 MG Q12H IV
     Route: 042
     Dates: start: 20100118, end: 20100203
  3. CLINDAMYCIN [Concomitant]
  4. FENTANYL CITRATE [Concomitant]
  5. HEPARIN [Concomitant]
  6. BENADRYL [Concomitant]
  7. HYDROXYZINE [Concomitant]
  8. LORAZEPAM [Concomitant]
  9. POTASSIUM [Concomitant]
  10. TEMAZEPAM [Concomitant]
  11. MORPHINE [Concomitant]

REACTIONS (3)
  - RASH ERYTHEMATOUS [None]
  - RENAL FAILURE ACUTE [None]
  - TUBULOINTERSTITIAL NEPHRITIS [None]
